FAERS Safety Report 13097571 (Version 1)
Quarter: 2017Q1

REPORT INFORMATION
  Report Type: Spontaneous
  Country: US (occurrence: US)
  Receive Date: 20170107
  Receipt Date: 20170107
  Transmission Date: 20170428
  Serious: Yes (Death, Hospitalization)
  Sender: FDA-Public Use
  Company Number: None

PATIENT
  Age: 64 Year
  Sex: Male
  Weight: 81.1 kg

DRUGS (1)
  1. MEMANTINE HYDROCHLORIDE. [Suspect]
     Active Substance: MEMANTINE HYDROCHLORIDE
     Dates: end: 20160919

REACTIONS (6)
  - Abdominal pain upper [None]
  - Condition aggravated [None]
  - Pain [None]
  - Metastases to oesophagus [None]
  - Metastases to liver [None]
  - Cancer pain [None]

NARRATIVE: CASE EVENT DATE: 20161017
